FAERS Safety Report 24554585 (Version 1)
Quarter: 2024Q4

REPORT INFORMATION
  Report Type: Spontaneous
  Country: SE (occurrence: SE)
  Receive Date: 20241028
  Receipt Date: 20241028
  Transmission Date: 20250114
  Serious: Yes (Disabling)
  Sender: TEVA
  Company Number: None

PATIENT
  Age: 15 Year
  Sex: Female
  Weight: 56 kg

DRUGS (1)
  1. ISOTRETINOIN [Suspect]
     Active Substance: ISOTRETINOIN
     Indication: Acne
     Dosage: 2 TABLETS/DAY: ISOTRETINOIN ACTAVIS
     Route: 048
     Dates: start: 20231016, end: 20231107

REACTIONS (2)
  - Colitis ulcerative [Recovered/Resolved with Sequelae]
  - Diarrhoea haemorrhagic [Recovered/Resolved with Sequelae]

NARRATIVE: CASE EVENT DATE: 20231107
